FAERS Safety Report 5709055-5 (Version None)
Quarter: 2008Q2

REPORT INFORMATION
  Report Type: 
  Country: None (occurrence: None)
  Receive Date: 20080416
  Receipt Date: 20080416
  Transmission Date: 20081010
  Serious: Yes (Life-Threatening)
  Sender: FDA-Public Use
  Company Number: None

PATIENT
  Age: 23 Year
  Sex: Female
  Weight: 65.7716 kg

DRUGS (2)
  1. ALEVE [Suspect]
     Indication: MUSCLE SPASMS
     Dosage: 200MG PRN PO ONE TIME DOSE
     Route: 048
     Dates: start: 20080222, end: 20080222
  2. ALEVE [Suspect]
     Indication: PAIN
     Dosage: 200MG PRN PO ONE TIME DOSE
     Route: 048
     Dates: start: 20080222, end: 20080222

REACTIONS (5)
  - CHEST DISCOMFORT [None]
  - DYSPNOEA [None]
  - LIP SWELLING [None]
  - THROAT TIGHTNESS [None]
  - URTICARIA [None]
